FAERS Safety Report 8951103 (Version 1)
Quarter: 2012Q4

REPORT INFORMATION
  Report Type: 
  Country: DE (occurrence: DE)
  Receive Date: 20121207
  Receipt Date: 20121207
  Transmission Date: 20130627
  Serious: Yes (Other)
  Sender: FDA-Public Use
  Company Number: DE-WATSON-2012-20815

PATIENT
  Sex: Female

DRUGS (3)
  1. SERTRALINE HYDROCHLORIDE (UNKNOWN) [Suspect]
     Indication: DEPRESSION
     Dosage: 50 [mg/d] beginning unclear, taken until delivery
     Route: 064
  2. MIRTAZAPINE (UNKNOWN) [Suspect]
     Indication: DEPRESSION
     Dosage: 15 [mg/d ]/ since December 2011
     Route: 064
  3. CENTRUM                            /01536001/ [Concomitant]
     Indication: PROPHYLAXIS OF NEURAL TUBE DEFECT
     Dosage: 0.4 [mg/d ]
     Route: 064

REACTIONS (1)
  - Infantile apnoeic attack [Recovered/Resolved]
